FAERS Safety Report 18550889 (Version 1)
Quarter: 2020Q4

REPORT INFORMATION
  Report Type: Report from Study
  Country: US (occurrence: US)
  Receive Date: 20201126
  Receipt Date: 20201126
  Transmission Date: 20210114
  Serious: Yes (Hospitalization)
  Sender: FDA-Public Use
  Company Number: US-JNJFOC-20201132249

PATIENT
  Age: 82 Year
  Sex: Male
  Weight: 81.72 kg

DRUGS (4)
  1. FELODIPINE. [Concomitant]
     Active Substance: FELODIPINE
  2. ELIQUIS [Concomitant]
     Active Substance: APIXABAN
  3. SELEXIPAG [Suspect]
     Active Substance: SELEXIPAG
     Indication: PULMONARY ARTERIAL HYPERTENSION
     Route: 048
     Dates: end: 20201109
  4. SILDENAFIL CITRATE. [Concomitant]
     Active Substance: SILDENAFIL CITRATE

REACTIONS (1)
  - Pneumonia [Unknown]

NARRATIVE: CASE EVENT DATE: 20201112
